FAERS Safety Report 15300568 (Version 2)
Quarter: 2018Q3

REPORT INFORMATION
  Report Type: Spontaneous
  Country: IT (occurrence: IT)
  Receive Date: 20180821
  Receipt Date: 20180921
  Transmission Date: 20181010
  Serious: Yes (Other)
  Sender: FDA-Public Use
  Company Number: PHHY2018IT074814

PATIENT
  Age: 61 Year
  Sex: Female

DRUGS (2)
  1. CLARITHROMYCIN. [Suspect]
     Active Substance: CLARITHROMYCIN
     Indication: RESPIRATORY TRACT INFECTION
     Dosage: 2 ?G/L, QD
     Route: 048
  2. ANSIMAR [Suspect]
     Active Substance: DOXOFYLLINE
     Indication: LUNG DISORDER
     Dosage: 2 ?G/L, QD
     Route: 048

REACTIONS (2)
  - Dyspnoea [Recovering/Resolving]
  - Hypersensitivity [Recovering/Resolving]

NARRATIVE: CASE EVENT DATE: 20180528
